FAERS Safety Report 9736115 (Version 1)
Quarter: 2013Q4

REPORT INFORMATION
  Report Type: Spontaneous
  Country: US (occurrence: US)
  Receive Date: 20131206
  Receipt Date: 20131206
  Transmission Date: 20140711
  Serious: Yes (Hospitalization)
  Sender: FDA-Public Use
  Company Number: US-GLAXOSMITHKLINE-B0951049A

PATIENT
  Age: 57 Year
  Sex: Male
  Weight: 76.4 kg

DRUGS (7)
  1. LETAIRIS [Suspect]
     Indication: PULMONARY ARTERIAL HYPERTENSION
     Route: 048
  2. FLOLAN [Suspect]
     Indication: PULMONARY ARTERIAL HYPERTENSION
     Route: 042
     Dates: start: 20080820
  3. FLOLAN [Suspect]
     Indication: PULMONARY ARTERIAL HYPERTENSION
  4. EPOPROSTENOL [Concomitant]
  5. VENTAVIS [Concomitant]
  6. REVATIO [Concomitant]
  7. COUMADIN [Concomitant]

REACTIONS (9)
  - Device related infection [Recovering/Resolving]
  - Infection [Unknown]
  - Catheter site infection [Recovering/Resolving]
  - Pain in jaw [Recovering/Resolving]
  - Diarrhoea [Recovering/Resolving]
  - Malaise [Recovering/Resolving]
  - Suture rupture [Recovering/Resolving]
  - Flushing [Recovering/Resolving]
  - Headache [Recovering/Resolving]
